FAERS Safety Report 24034860 (Version 1)
Quarter: 2024Q3

REPORT INFORMATION
  Report Type: Spontaneous
  Country: BY (occurrence: BY)
  Receive Date: 20240701
  Receipt Date: 20240701
  Transmission Date: 20241017
  Serious: Yes (Death)
  Sender: JOHNSON AND JOHNSON
  Company Number: BY-JNJFOC-20240676051

PATIENT
  Age: 66 Year
  Sex: Male
  Weight: 56.7 kg

DRUGS (6)
  1. BEDAQUILINE [Suspect]
     Active Substance: BEDAQUILINE
     Indication: Product used for unknown indication
     Dosage: FOR 2 WEEKS
     Route: 048
     Dates: start: 20220616
  2. BEDAQUILINE [Suspect]
     Active Substance: BEDAQUILINE
     Dosage: FOR 2 WEEKS
     Route: 048
     Dates: end: 20221130
  3. LINEZOLID [Suspect]
     Active Substance: LINEZOLID
     Indication: Product used for unknown indication
     Dosage: FOR 16 WEEKS
     Route: 048
     Dates: start: 20220616
  4. LINEZOLID [Suspect]
     Active Substance: LINEZOLID
     Route: 048
     Dates: end: 20221130
  5. PRETOMANID [Suspect]
     Active Substance: PRETOMANID
     Indication: Product used for unknown indication
     Route: 048
     Dates: start: 20220616, end: 20221130
  6. MOXIFLOXACIN [Suspect]
     Active Substance: MOXIFLOXACIN
     Indication: Product used for unknown indication
     Route: 048
     Dates: start: 20220616, end: 20221130

REACTIONS (1)
  - Coronary artery disease [Fatal]

NARRATIVE: CASE EVENT DATE: 20230914
